FAERS Safety Report 9383945 (Version 1)
Quarter: 2013Q3

REPORT INFORMATION
  Report Type: Spontaneous
  Country: US (occurrence: US)
  Receive Date: 20130705
  Receipt Date: 20130705
  Transmission Date: 20140515
  Serious: No
  Sender: FDA-Public Use
  Company Number: US-B.I. PHARMACEUTICALS,INC./RIDGEFIELD-2013-BI-19049BP

PATIENT
  Age: 84 Year
  Sex: Female
  Weight: 57 kg

DRUGS (9)
  1. MIRAPEX [Suspect]
     Indication: PARKINSONISM
     Dosage: 1.5 MG
     Route: 048
     Dates: end: 201303
  2. MIRAPEX [Suspect]
     Indication: PARKINSONISM
     Dosage: 0.75 MG
     Route: 048
     Dates: start: 201303, end: 201303
  3. MIRAPEX [Suspect]
     Indication: PARKINSONISM
     Dosage: 0.75 MG
     Route: 048
     Dates: start: 201303, end: 201305
  4. MIRAPEX [Suspect]
     Indication: PARKINSONISM
     Dosage: 0.75 MG
     Route: 048
     Dates: start: 201305, end: 20130617
  5. MIRAPEX [Suspect]
     Indication: PARKINSONISM
     Dosage: 0.375 MG
     Route: 048
     Dates: start: 20130617
  6. SINEMET [Concomitant]
     Indication: PARKINSON^S DISEASE
  7. LEVOTHYROXINE [Concomitant]
     Indication: HYPOTHYROIDISM
  8. CLONAZEPAM [Concomitant]
     Indication: EPILEPSY
     Dosage: 0.5 MG
     Route: 048
  9. ZEMPLAR [Concomitant]
     Indication: OSTEOPOROSIS

REACTIONS (6)
  - Somnolence [Recovered/Resolved]
  - Insomnia [Recovered/Resolved]
  - Amnesia [Recovered/Resolved]
  - Memory impairment [Recovered/Resolved]
  - Muscle twitching [Recovered/Resolved]
  - Panic disorder [Recovered/Resolved]
